FAERS Safety Report 18661654 (Version 1)
Quarter: 2020Q4

REPORT INFORMATION
  Report Type: Spontaneous
  Country: US (occurrence: US)
  Receive Date: 20201224
  Receipt Date: 20201224
  Transmission Date: 20210114
  Serious: Yes (Death, Hospitalization)
  Sender: FDA-Public Use
  Company Number: US-PFIZER INC-2020506319

PATIENT
  Age: 69 Year
  Sex: Male
  Weight: 68.03 kg

DRUGS (1)
  1. TALZENNA [Suspect]
     Active Substance: TALAZOPARIB TOSYLATE
     Indication: OESOPHAGEAL ADENOCARCINOMA
     Dosage: 1 MG, 1X/DAY
     Route: 048
     Dates: start: 20201113, end: 20201203

REACTIONS (3)
  - Off label use [Unknown]
  - Neoplasm progression [Fatal]
  - Pain [Unknown]
